FAERS Safety Report 8787846 (Version 2)
Quarter: 2012Q4

REPORT INFORMATION
  Report Type: 
  Country: US (occurrence: US)
  Receive Date: 20120914
  Receipt Date: 20121029
  Transmission Date: 20130627
  Serious: No
  Sender: FDA-Public Use
  Company Number: US-VERTEX PHARMACEUTICAL INC.-AE-2012-000878

PATIENT
  Age: 54 Year
  Sex: Male
  Weight: 113.38 kg

DRUGS (8)
  1. VX-950 [Suspect]
     Indication: HEPATITIS C
     Dosage: UNK
     Route: 048
  2. PEGASYS [Concomitant]
     Indication: HEPATITIS C
     Dates: start: 20111216
  3. RIBAVIRIN [Concomitant]
     Indication: HEPATITIS C
     Dosage: 1200 mg, bid
     Dates: start: 20111216
  4. MULTIVITAMIN                       /00097801/ [Concomitant]
  5. VITAMIN E                          /00110501/ [Concomitant]
     Dosage: 1000 ut, UNK
  6. VITAMIN D /00107901/ [Concomitant]
     Dosage: 400 ut, UNK
  7. VITAMIN B [Concomitant]
  8. WELLBUTRIN [Concomitant]
     Dosage: 100 mg, UNK

REACTIONS (9)
  - Depression [Not Recovered/Not Resolved]
  - Insomnia [Unknown]
  - Fatigue [Recovered/Resolved]
  - Rash [Recovered/Resolved]
  - Haemorrhoids [Unknown]
  - Anal pruritus [Recovered/Resolved]
  - Proctalgia [Unknown]
  - Anorectal discomfort [Recovered/Resolved]
  - Drug ineffective [Unknown]
